FAERS Safety Report 7228302-4 (Version None)
Quarter: 2011Q1

REPORT INFORMATION
  Report Type: 
  Country: None (occurrence: None)
  Receive Date: 20110114
  Receipt Date: 20110105
  Transmission Date: 20110831
  Serious: Yes (Other)
  Sender: FDA-Public Use
  Company Number: US-ASTRAZENECA-2011SE01017

PATIENT
  Age: 50 Year
  Sex: Male

DRUGS (2)
  1. TRILIPICS [Concomitant]
  2. CRESTOR [Suspect]
     Dosage: 10 OR 20 MG
     Route: 048

REACTIONS (2)
  - HEPATIC ENZYME INCREASED [None]
  - RHABDOMYOLYSIS [None]
